FAERS Safety Report 6815858-6 (Version None)
Quarter: 2010Q3

REPORT INFORMATION
  Report Type: 
  Country: None (occurrence: None)
  Receive Date: 20100705
  Receipt Date: 20100624
  Transmission Date: 20110219
  Serious: Yes (Hospitalization)
  Sender: FDA-Public Use
  Company Number: 190762

PATIENT
  Age: 45 Year
  Sex: Female
  Weight: 108 kg

DRUGS (7)
  1. AVONEX [Suspect]
     Indication: MULTIPLE SCLEROSIS
     Route: 030
     Dates: start: 19980101, end: 20030301
  2. AVONEX [Suspect]
     Route: 030
     Dates: start: 20040201, end: 20050101
  3. DOXEPIN HCL [Concomitant]
     Indication: SLEEP DISORDER THERAPY
     Dates: start: 19980101
  4. HORMONE REPLACEMENT THERAPY (NOS) [Concomitant]
     Indication: HORMONE REPLACEMENT THERAPY
     Dates: start: 19740101
  5. METHOTREXATE [Concomitant]
     Indication: PAIN
     Dates: start: 20000101
  6. SKELAXIN [Concomitant]
     Indication: MUSCLE SPASTICITY
     Dates: start: 20030101
  7. HYDROCHLOROTHIAZIDE [Concomitant]
     Indication: OEDEMA PERIPHERAL
     Dates: start: 20010101

REACTIONS (7)
  - ASTHMA [None]
  - FATIGUE [None]
  - FIBROMYALGIA [None]
  - HIP ARTHROPLASTY [None]
  - MULTIPLE SCLEROSIS RELAPSE [None]
  - OSTEOARTHRITIS [None]
  - SINUS OPERATION [None]
